FAERS Safety Report 12706639 (Version 2)
Quarter: 2016Q3

REPORT INFORMATION
  Report Type: Report from Study
  Country: US (occurrence: US)
  Receive Date: 20160901
  Receipt Date: 20160909
  Transmission Date: 20161109
  Serious: Yes (Hospitalization)
  Sender: FDA-Public Use
  Company Number: US-JNJFOC-20160827267

PATIENT
  Age: 68 Year
  Sex: Female
  Weight: 49 kg

DRUGS (11)
  1. GEMCITABINE [Suspect]
     Active Substance: GEMCITABINE\GEMCITABINE HYDROCHLORIDE
     Indication: PANCREATIC CARCINOMA METASTATIC
     Route: 042
     Dates: start: 20160623, end: 20160728
  2. ATIVAN [Concomitant]
     Active Substance: LORAZEPAM
  3. ZOFRAN [Concomitant]
     Active Substance: ONDANSETRON HYDROCHLORIDE
  4. CREON [Concomitant]
     Active Substance: PANCRELIPASE AMYLASE\PANCRELIPASE LIPASE\PANCRELIPASE PROTEASE
  5. TYLENOL [Concomitant]
     Active Substance: ACETAMINOPHEN
  6. IBRUTINIB [Suspect]
     Active Substance: IBRUTINIB
     Indication: PANCREATIC CARCINOMA METASTATIC
     Route: 048
     Dates: start: 20160623, end: 20160804
  7. IRBESARTAN. [Concomitant]
     Active Substance: IRBESARTAN
  8. SENNA [Concomitant]
     Active Substance: SENNA LEAF\SENNOSIDES\SENNOSIDES A AND B
  9. PACLITAX NAB [Suspect]
     Active Substance: PACLITAXEL
     Indication: PANCREATIC CARCINOMA METASTATIC
     Route: 042
     Dates: start: 20160623, end: 20160728
  10. GLIPIZIDE. [Concomitant]
     Active Substance: GLIPIZIDE
  11. OXYCODONE [Concomitant]
     Active Substance: OXYCODONE

REACTIONS (2)
  - Pulmonary embolism [Unknown]
  - Oedema peripheral [Unknown]

NARRATIVE: CASE EVENT DATE: 20160824
